FAERS Safety Report 7694097-3 (Version None)
Quarter: 2011Q3

REPORT INFORMATION
  Report Type: 
  Country: None (occurrence: None)
  Receive Date: 20110819
  Receipt Date: 20110809
  Transmission Date: 20111222
  Serious: Yes (Hospitalization)
  Sender: FDA-Public Use
  Company Number: UA-JNJFOC-20110600858

PATIENT

DRUGS (6)
  1. FOLIC ACID [Concomitant]
     Route: 048
     Dates: start: 20060908
  2. GOLIMUMAB [Suspect]
     Indication: RHEUMATOID ARTHRITIS
     Route: 058
     Dates: start: 20060901
  3. GOLIMUMAB [Suspect]
     Route: 058
     Dates: start: 20110411
  4. BIVALOS [Concomitant]
     Indication: ILL-DEFINED DISORDER
     Route: 048
     Dates: start: 20081029
  5. METHOTREXATE [Suspect]
     Indication: RHEUMATOID ARTHRITIS
     Route: 048
     Dates: start: 20060906
  6. CALCIUM/D3 [Concomitant]
     Indication: ILL-DEFINED DISORDER
     Dates: start: 20081029

REACTIONS (1)
  - HERPES ZOSTER [None]
